FAERS Safety Report 4532439-8 (Version None)
Quarter: 2004Q4

REPORT INFORMATION
  Report Type: 
  Country: None (occurrence: None)
  Receive Date: 20041217
  Receipt Date: 20041206
  Transmission Date: 20050328
  Serious: Yes (Other)
  Sender: FDA-Public Use
  Company Number: S04-USA-07777-01

PATIENT
  Age: 45 Year
  Sex: Male

DRUGS (1)
  1. LEXAPRO [Suspect]
     Indication: BIPOLAR I DISORDER
     Dates: start: 20020101

REACTIONS (1)
  - DRUG TOXICITY [None]
